FAERS Safety Report 6327044-7 (Version None)
Quarter: 2009Q3

REPORT INFORMATION
  Report Type: 
  Country: None (occurrence: None)
  Receive Date: 20090825
  Receipt Date: 20090728
  Transmission Date: 20100115
  Serious: No
  Sender: FDA-Public Use
  Company Number: US-BAYER-200912839BCC

PATIENT
  Age: 56 Year
  Sex: Female
  Weight: 91 kg

DRUGS (5)
  1. ALEVE (CAPLET) [Suspect]
     Indication: DRUG USE FOR UNKNOWN INDICATION
     Dosage: TOTAL DAILY DOSE: 220 MG  UNIT DOSE: 220 MG
     Route: 048
  2. HYDROCODINE [Concomitant]
     Route: 065
  3. ZANTAC [Concomitant]
     Route: 065
  4. LICENIPRIL-HCTZ [Concomitant]
     Route: 065
  5. ATENOLOL [Concomitant]
     Route: 065

REACTIONS (1)
  - GLOSSODYNIA [None]
